FAERS Safety Report 20010813 (Version 2)
Quarter: 2021Q4

REPORT INFORMATION
  Report Type: Spontaneous
  Country: US (occurrence: US)
  Receive Date: 20211028
  Receipt Date: 20211102
  Transmission Date: 20220303
  Serious: Yes (Other)
  Sender: FDA-Public Use
  Company Number: US-TEVA-2021-US-1968811

PATIENT
  Age: 66 Year
  Sex: Female

DRUGS (26)
  1. ACETAMINOPHEN\HYDROCODONE [Interacting]
     Active Substance: ACETAMINOPHEN\HYDROCODONE
     Indication: Pain
     Dosage: FOUR TIMES DAILY AS NEEDED FOR PAIN
     Route: 048
  2. DULOXETINE [Interacting]
     Active Substance: DULOXETINE
     Indication: Major depression
     Dosage: 60 MILLIGRAM DAILY;
     Route: 048
  3. METOPROLOL TARTRATE [Interacting]
     Active Substance: METOPROLOL TARTRATE
     Indication: Hypertension
     Dosage: 200 MILLIGRAM DAILY;
     Route: 048
  4. ACETAMINOPHEN [Concomitant]
     Active Substance: ACETAMINOPHEN
     Indication: Pain
     Dosage: 1950 MILLIGRAM DAILY; THREE TIMES DAILY AS NEEDED FOR PAIN
     Route: 048
  5. GABAPENTIN [Concomitant]
     Active Substance: GABAPENTIN
     Indication: Pain
     Dosage: 1800 MILLIGRAM DAILY; THREE TIMES DAILY
     Route: 048
  6. DICLOFENAC [Concomitant]
     Active Substance: DICLOFENAC
     Indication: Pain
     Dosage: 8 GRAM DAILY; FOUR TIMES DAILY AS NEEDED FOR PAIN
     Route: 061
  7. LIDOCAINE [Concomitant]
     Active Substance: LIDOCAINE
     Indication: Pain
     Dosage: 1 PATCH DAILY AS NEEDED FOR PAIN
     Route: 061
  8. AMLODIPINE [Concomitant]
     Active Substance: AMLODIPINE BESYLATE
     Indication: Hypertension
     Dosage: 5 MILLIGRAM DAILY;
     Route: 048
  9. VALSARTAN [Concomitant]
     Active Substance: VALSARTAN
     Indication: Hypertension
     Dosage: 320 MILLIGRAM DAILY;
     Route: 048
  10. CLONIDINE [Concomitant]
     Active Substance: CLONIDINE
     Indication: Hypertension
     Dosage: .1 MILLIGRAM DAILY;
     Route: 048
  11. FUROSEMIDE [Concomitant]
     Active Substance: FUROSEMIDE
     Indication: Hypertension
     Dosage: 40 MILLIGRAM DAILY;
     Route: 048
  12. APIXABAN [Concomitant]
     Active Substance: APIXABAN
     Indication: Atrial fibrillation
     Dosage: 10 MILLIGRAM DAILY;
     Route: 048
  13. DRONEDARONE [Concomitant]
     Active Substance: DRONEDARONE
     Indication: Atrial fibrillation
     Dosage: 800 MILLIGRAM DAILY;
     Route: 048
  14. ALLOPURINOL [Concomitant]
     Active Substance: ALLOPURINOL
     Indication: Gout
     Dosage: 300 MILLIGRAM DAILY;
     Route: 048
  15. LEVOTHYROXINE [Concomitant]
     Active Substance: LEVOTHYROXINE
     Indication: Hypothyroidism
     Dosage: 88 MICROGRAM DAILY;
     Route: 048
  16. INSULIN ASPART [Concomitant]
     Active Substance: INSULIN ASPART
     Indication: Type 2 diabetes mellitus
     Dosage: 26 UNITS; THREE TIMES DAILY BEFORE MEALS
     Route: 058
  17. INSULIN GLARGINE [Concomitant]
     Active Substance: INSULIN GLARGINE
     Indication: Type 2 diabetes mellitus
     Dosage: 20 UNITS
     Route: 058
  18. PANTOPRAZOLE [Concomitant]
     Active Substance: PANTOPRAZOLE
     Indication: Gastrooesophageal reflux disease
     Dosage: 40 MILLIGRAM DAILY;
     Route: 048
  19. MELATONIN [Concomitant]
     Active Substance: MELATONIN
     Indication: Insomnia
     Dosage: 5 MILLIGRAM DAILY;
     Route: 048
  20. LOPERAMIDE [Concomitant]
     Active Substance: LOPERAMIDE
     Indication: Diarrhoea
     Dosage: 8 MILLIGRAM DAILY; FOUR TIMES DAILY AS NEEDED
     Route: 048
  21. ONDANSETRON [Concomitant]
     Active Substance: ONDANSETRON
     Indication: Nausea
     Dosage: 16 MILLIGRAM DAILY; FOUR TIMES DAILY AS NEEDED
     Route: 048
  22. NYSTATIN [Concomitant]
     Active Substance: NYSTATIN
     Indication: Candida infection
     Dosage: 10000 UNIT/GRAM; FOUR TIMES DAILY AS NEEDED
     Route: 048
  23. CALCITRIOL [Concomitant]
     Active Substance: CALCITRIOL
     Indication: Vitamin supplementation
     Dosage: .25 MICROGRAM DAILY;
     Route: 048
  24. CHOLECALCIFEROL [Concomitant]
     Active Substance: CHOLECALCIFEROL
     Indication: Vitamin supplementation
     Dosage: 2000 UNITS
     Route: 048
  25. Iron carbonyl/ ascorbic acid [Concomitant]
     Indication: Supplementation therapy
     Route: 048
  26. Methyl salicylate/menthol/camphor [Concomitant]
     Indication: Pain
     Dosage: 1 APPLICATION TWICE DAILY AS NEEDED
     Route: 061

REACTIONS (6)
  - Cytogenetic analysis abnormal [Recovering/Resolving]
  - Drug interaction [Recovering/Resolving]
  - CYP2D6 gene status assay [Recovering/Resolving]
  - Therapeutic product effect increased [Recovering/Resolving]
  - Bradycardia [Recovering/Resolving]
  - Therapeutic product effect decreased [Recovering/Resolving]
